FAERS Safety Report 5642623-8 (Version None)
Quarter: 2008Q1

REPORT INFORMATION
  Report Type: 
  Country: None (occurrence: None)
  Receive Date: 20080226
  Receipt Date: 20080214
  Transmission Date: 20080703
  Serious: Yes (Hospitalization)
  Sender: FDA-Public Use
  Company Number: GXKR2008DE01588

PATIENT
  Age: 67 Year
  Sex: Male

DRUGS (19)
  1. EMBOLEX [Suspect]
     Indication: THROMBOSIS PROPHYLAXIS
     Dosage: SUBCUTANEOUS
     Route: 058
     Dates: start: 20040919, end: 20040923
  2. METHOTREXATE [Suspect]
     Indication: POLYARTHRITIS
     Dosage: 100 MG/DAY, ORAL
     Route: 048
     Dates: start: 20040924, end: 20040925
  3. METHOTREXATE [Suspect]
     Indication: POLYARTHRITIS
     Dosage: 100 MG/DAY, ORAL
     Route: 048
     Dates: start: 19960101
  4. METHOTREXATE [Suspect]
     Indication: POLYARTHRITIS
     Dosage: 100 MG/DAY, ORAL
     Route: 048
     Dates: start: 20040930
  5. AUGMENTIN I.V.(AMOXICILLIN SODIUM, CLAVULANATE POTASSIUM) 2.2G [Suspect]
     Indication: INFECTION PROPHYLAXIS
     Dosage: 1 DF, TID, INTRAVENOUS
     Route: 042
     Dates: start: 20040919, end: 20040920
  6. OXYGESIC(OXYCODONE HYDROCHLORIDE) 20MG [Suspect]
     Indication: PAIN
     Dosage: ORAL
     Route: 048
     Dates: start: 20040919, end: 20040920
  7. BAYOTENSIN(NITRENDIPINE) [Suspect]
     Indication: HYPERTENSION
     Dosage: 1 DF, BID, ORAL
     Route: 048
     Dates: start: 20040919, end: 20040924
  8. CAPTOPRIL [Suspect]
     Indication: HYPERTENSION
     Dosage: ORAL
     Route: 048
     Dates: start: 20040919
  9. HYDROCHLOROTHIAZIDE [Suspect]
     Indication: HYPERTENSION
     Dosage: ORAL
     Route: 048
     Dates: start: 20040919
  10. IBUPROFEN [Suspect]
     Indication: PAIN
     Dosage: 1 0-0/DAY, ORAL
     Route: 048
     Dates: start: 20040920, end: 20040922
  11. METAMIZOLE SODIUM(METAMIZOLE SODIUM) DROPS [Suspect]
     Indication: PAIN
     Dosage: 20 DRP, TID, ORAL
     Route: 048
     Dates: start: 20040920, end: 20040923
  12. REMERGIL(MIRTAZAPINE) 30MG [Suspect]
     Indication: DEPRESSION
     Dosage: 0-0-0, ORAL
     Route: 048
     Dates: start: 20040921
  13. ASCORBIC ACID [Concomitant]
  14. DOCITON (PROPRANOL HYDROCHLORIDE) [Concomitant]
  15. ULTRALAN-ORAL (FLUCORTOLONE) [Concomitant]
  16. ACETYLSALICYLIC ACID SRT [Concomitant]
  17. OXAZEPAM [Concomitant]
  18. LORAZEPAM [Concomitant]
  19. OMEPRAZOLE [Concomitant]

REACTIONS (5)
  - CONSTIPATION [None]
  - DEPRESSION [None]
  - HIP ARTHROPLASTY [None]
  - HYPERCHLORHYDRIA [None]
  - STEVENS-JOHNSON SYNDROME [None]
